FAERS Safety Report 20797835 (Version 4)
Quarter: 2022Q2

REPORT INFORMATION
  Report Type: Spontaneous
  Country: BR (occurrence: BR)
  Receive Date: 20220506
  Receipt Date: 20220610
  Transmission Date: 20220720
  Serious: Yes (Hospitalization)
  Sender: FDA-Public Use
  Company Number: BR-BIOMARINAP-BR-2022-143111

PATIENT
  Age: 9 Year
  Sex: Female
  Weight: 30 kg

DRUGS (1)
  1. NAGLAZYME [Suspect]
     Active Substance: GALSULFASE
     Indication: Mucopolysaccharidosis VI
     Dosage: UNK, QW
     Route: 042

REACTIONS (8)
  - Pneumonia [Recovered/Resolved]
  - Pulmonary mass [Recovered/Resolved]
  - Rhinorrhoea [Recovered/Resolved]
  - Cough [Recovering/Resolving]
  - Influenza [Recovered/Resolved]
  - Fatigue [Recovering/Resolving]
  - Oxygen saturation decreased [Recovered/Resolved]
  - Nasal congestion [Unknown]

NARRATIVE: CASE EVENT DATE: 20220424
